FAERS Safety Report 8579653 (Version 2)
Quarter: 2012Q4

REPORT INFORMATION
  Report Type: 
  Country: FR (occurrence: FR)
  Receive Date: 20120525
  Receipt Date: 20120904
  Transmission Date: 20130627
  Serious: Yes (Life-Threatening, Hospitalization, Other)
  Sender: FDA-Public Use
  Company Number: FR-BRISTOL-MYERS SQUIBB COMPANY-16598286

PATIENT
  Age: 65 Year
  Sex: Female

DRUGS (5)
  1. COAPROVEL FILM-COATED TABS 300/12.5 MG [Suspect]
     Indication: HYPERTENSION
     Dosage: 1DF= 300/12.5 mg
     Route: 048
     Dates: end: 20120412
  2. METFORMIN HCL [Suspect]
     Indication: INSULIN-REQUIRING TYPE 2 DIABETES MELLITUS
     Route: 048
     Dates: end: 20120412
  3. TAHOR [Concomitant]
     Route: 048
     Dates: end: 20120412
  4. OMEPRAZOLE [Concomitant]
  5. LANTUS [Concomitant]
     Route: 058

REACTIONS (6)
  - Lactic acidosis [Recovered/Resolved]
  - Renal failure acute [Recovering/Resolving]
  - Shock [Unknown]
  - Diarrhoea [Unknown]
  - Vomiting [Unknown]
  - Toxicity to various agents [Recovered/Resolved]
